FAERS Safety Report 4989225-4 (Version None)
Quarter: 2006Q2

REPORT INFORMATION
  Report Type: 
  Country: None (occurrence: None)
  Receive Date: 20060425
  Receipt Date: 20060410
  Transmission Date: 20061013
  Serious: Yes (Other)
  Sender: FDA-Public Use
  Company Number: 2006049786

PATIENT
  Age: 82 Year
  Sex: Male
  Weight: 86.1834 kg

DRUGS (4)
  1. VIAGRA [Suspect]
     Indication: ERECTILE DYSFUNCTION
     Dosage: (25 MG,)
     Dates: start: 20031101
  2. PLAVIX [Concomitant]
  3. CRESTOR [Concomitant]
  4. LIPITOR [Concomitant]

REACTIONS (2)
  - BLINDNESS UNILATERAL [None]
  - EYE HAEMORRHAGE [None]
